FAERS Safety Report 4445450-2 (Version None)
Quarter: 2004Q3

REPORT INFORMATION
  Report Type: 
  Country: None (occurrence: None)
  Receive Date: 20040802
  Receipt Date: 20040427
  Transmission Date: 20050211
  Serious: No
  Sender: FDA-Public Use
  Company Number: 2004-115991-NL

PATIENT
  Age: 38 Year
  Sex: Female
  Weight: 77.11 kg

DRUGS (5)
  1. NUVARING [Suspect]
     Indication: CONTRACEPTION
     Dosage: DF DAILY VAGINAL
     Route: 067
     Dates: start: 20040409
  2. FLUOXETINE [Concomitant]
  3. PHENTERMINE [Concomitant]
  4. HYDROCODONE [Concomitant]
  5. ALLEGRA [Concomitant]

REACTIONS (2)
  - DYSMENORRHOEA [None]
  - METRORRHAGIA [None]
